FAERS Safety Report 21927556 (Version 4)
Quarter: 2023Q1

REPORT INFORMATION
  Report Type: Report from Study
  Country: US (occurrence: US)
  Receive Date: 20230130
  Receipt Date: 20230227
  Transmission Date: 20230417
  Serious: No
  Sender: FDA-Public Use
  Company Number: US-002147023-NVSC2023US012226

PATIENT
  Sex: Male

DRUGS (2)
  1. COSENTYX [Suspect]
     Active Substance: SECUKINUMAB
     Indication: Psoriasis
     Dosage: UNK (LOADING DOSES)
     Route: 065
  2. COSENTYX [Suspect]
     Active Substance: SECUKINUMAB
     Dosage: 300 MG, QMO
     Route: 058

REACTIONS (7)
  - Injection related reaction [Recovering/Resolving]
  - Fungal infection [Recovering/Resolving]
  - Erythema [Recovering/Resolving]
  - Bacterial infection [Recovering/Resolving]
  - Rash [Unknown]
  - Psoriasis [Unknown]
  - Drug ineffective [Unknown]
